FAERS Safety Report 19376772 (Version 2)
Quarter: 2021Q4

REPORT INFORMATION
  Report Type: Report from Study
  Country: KR (occurrence: KR)
  Receive Date: 20210605
  Receipt Date: 20211028
  Transmission Date: 20220303
  Serious: Yes (Other)
  Sender: FDA-Public Use
  Company Number: KR-KYOWAKIRIN-2021AKK009137

PATIENT
  Age: 50 Year
  Sex: Male

DRUGS (19)
  1. FILGRASTIM [Suspect]
     Active Substance: FILGRASTIM
     Indication: Product used for unknown indication
     Dosage: 300 UNK, QD
     Route: 065
     Dates: start: 20180809, end: 20180809
  2. RAMUCIRUMAB [Concomitant]
     Active Substance: RAMUCIRUMAB
     Indication: Product used for unknown indication
     Dosage: UNK, QD
     Dates: start: 20180803, end: 20180803
  3. ALBUMIN HUMAN [Concomitant]
     Active Substance: ALBUMIN HUMAN
     Indication: Product used for unknown indication
     Dosage: 100 UNK, QD
     Dates: start: 20180806, end: 20180806
  4. CEFAZOLIN [Concomitant]
     Active Substance: CEFAZOLIN
     Indication: Product used for unknown indication
     Dosage: 3 UNK, QD
     Dates: start: 20180802, end: 20180803
  5. CEFAZOLIN [Concomitant]
     Active Substance: CEFAZOLIN
     Dosage: 3 UNK, QD
     Dates: start: 20180804, end: 20180806
  6. CHLORPHENIRAMINE MALEATE [Concomitant]
     Active Substance: CHLORPHENIRAMINE MALEATE
     Indication: Product used for unknown indication
     Dosage: 4 MG, QD
     Dates: start: 20180803, end: 20180803
  7. DEXAMETHASONE [Concomitant]
     Active Substance: DEXAMETHASONE
     Indication: Product used for unknown indication
     Dosage: 20 MG, QD
     Dates: start: 20180803, end: 20180803
  8. FUROSEMIDE [Concomitant]
     Active Substance: FUROSEMIDE
     Indication: Product used for unknown indication
     Dosage: 2 DF, QD
     Dates: start: 20180803
  9. FUROSEMIDE [Concomitant]
     Active Substance: FUROSEMIDE
     Dosage: 20 MG
     Dates: start: 20180803, end: 20180803
  10. METOCLOPRAMIDE [Concomitant]
     Active Substance: METOCLOPRAMIDE
     Indication: Product used for unknown indication
     Dosage: 10 MG, QD
     Dates: start: 20180803, end: 20180803
  11. OXYCODONE [Concomitant]
     Active Substance: OXYCODONE
     Indication: Product used for unknown indication
     Dosage: 2 DF, QD
     Dates: start: 20180805, end: 20180805
  12. OXYCODONE [Concomitant]
     Active Substance: OXYCODONE
     Dosage: 4 DF, QD
     Dates: start: 20180807
  13. OXYCODONE/NALOXONE RATIOPHARM [Concomitant]
     Indication: Product used for unknown indication
     Dosage: 1 DF, QD
     Dates: start: 20180803, end: 20180803
  14. OXYCODONE/NALOXONE RATIOPHARM [Concomitant]
     Dosage: 2 DF, QD
     Dates: start: 20180803
  15. PACLITAXEL [Concomitant]
     Active Substance: PACLITAXEL
     Indication: Product used for unknown indication
     Dosage: 80 UNK, QD
     Dates: start: 20180803, end: 20180803
  16. PACLITAXEL [Concomitant]
     Active Substance: PACLITAXEL
     Dosage: 80 UNK, QD
     Dates: start: 20180813, end: 20180813
  17. RANITIDINE [Concomitant]
     Active Substance: RANITIDINE
     Indication: Product used for unknown indication
     Dosage: 50 MG, QD
     Dates: start: 20180803, end: 20180803
  18. RANITIDINE [Concomitant]
     Active Substance: RANITIDINE
     Dosage: 50 MG, QD
     Dates: start: 20180813, end: 20180813
  19. SODIUM BICARBONATE [Concomitant]
     Active Substance: SODIUM BICARBONATE
     Indication: Product used for unknown indication
     Dosage: 3 UNK, QD
     Dates: start: 20180809

REACTIONS (2)
  - Neutropenia [Recovered/Resolved]
  - Candida infection [Not Recovered/Not Resolved]

NARRATIVE: CASE EVENT DATE: 20180809
